FAERS Safety Report 7556975-5 (Version None)
Quarter: 2011Q2

REPORT INFORMATION
  Report Type: 
  Country: None (occurrence: None)
  Receive Date: 20110620
  Receipt Date: 20110607
  Transmission Date: 20111010
  Serious: Yes (Other)
  Sender: FDA-Public Use
  Company Number: PHFR2011GB02931

PATIENT
  Sex: Female

DRUGS (4)
  1. CLOZAPINE [Suspect]
     Indication: SCHIZOPHRENIA
     Dosage: 300 MG, QD
     Route: 048
     Dates: start: 20100811, end: 20110401
  2. CLOZAPINE [Suspect]
     Route: 048
     Dates: start: 20110501
  3. CLOZAPINE [Suspect]
     Dosage: 100 MG, QD
     Route: 048
     Dates: start: 20110502
  4. SERTRALINE HYDROCHLORIDE [Concomitant]
     Indication: DEPRESSION
     Dosage: 200 MG/DAY
     Route: 048

REACTIONS (1)
  - MEDICATION ERROR [None]
